FAERS Safety Report 6422335-3 (Version None)
Quarter: 2009Q4

REPORT INFORMATION
  Report Type: 
  Country: None (occurrence: None)
  Receive Date: 20091030
  Receipt Date: 20090930
  Transmission Date: 20100525
  Serious: Yes (Hospitalization)
  Sender: FDA-Public Use
  Company Number: US-BAXTER-2009BH014944

PATIENT
  Age: 7 Year
  Sex: Male
  Weight: 18 kg

DRUGS (1)
  1. ADVATE [Suspect]
     Indication: IMMUNE ENHANCEMENT THERAPY
     Route: 065
     Dates: start: 20060213, end: 20060213

REACTIONS (1)
  - HAEMATOMA [None]
